FAERS Safety Report 4313564-3 (Version None)
Quarter: 2004Q1

REPORT INFORMATION
  Report Type: 
  Country: None (occurrence: None)
  Receive Date: 20040304
  Receipt Date: 20040218
  Transmission Date: 20041129
  Serious: Yes (Hospitalization, Other)
  Sender: FDA-Public Use
  Company Number: USA040259763

PATIENT
  Age: 82 Year
  Sex: Female

DRUGS (10)
  1. FORTEO [Suspect]
     Indication: OSTEOPOROSIS
     Dates: start: 20030401
  2. ZYPREXA [Concomitant]
  3. REMERON [Concomitant]
  4. LEXAPRO [Concomitant]
  5. ZESTRIL [Concomitant]
  6. SENOKOT [Concomitant]
  7. ASPIRIN [Concomitant]
  8. OSCAL (CALCIUM CARBONATE) [Concomitant]
  9. DITROPAN [Concomitant]
  10. VITAMIN CAP [Concomitant]

REACTIONS (2)
  - FALL [None]
  - PHARMACEUTICAL PRODUCT COMPLAINT [None]
